FAERS Safety Report 8599427-6 (Version None)
Quarter: 2012Q3

REPORT INFORMATION
  Report Type: 
  Country: None (occurrence: None)
  Receive Date: 20120808
  Receipt Date: 20120808
  Transmission Date: 20120928
  Serious: Yes (Other)
  Sender: FDA-Public Use
  Company Number: None

PATIENT
  Age: 81 Year
  Sex: Female
  Weight: 55 kg

DRUGS (24)
  1. CALCIUM + VITAMIN D [Concomitant]
  2. VITAMIN D [Concomitant]
  3. HYDROXYCHLOROQUINE SULFATE [Concomitant]
  4. BISACODYL [Concomitant]
  5. CITALOPRAM HYDROBROMIDE [Concomitant]
  6. TRAMADOL HCL [Concomitant]
  7. LACTOBACILLUS ACIDOPHILUS [Concomitant]
  8. AMIODARONE UNKNOWN [Suspect]
     Indication: ATRIAL FIBRILLATION
     Dosage: 200 MG DAILY PO PRIOR TO ADMISSION
     Route: 048
  9. FUROSEMIDE [Concomitant]
  10. OMEGA 3 FATTY ACID [Concomitant]
  11. SENNA [Concomitant]
  12. ACETAMINOPHEN [Concomitant]
  13. CEPHALEXIN [Concomitant]
  14. CARVEDILOL [Concomitant]
  15. FERROUS SULFATE TAB [Concomitant]
  16. LORAZEPAM [Concomitant]
  17. MILK OF MAGNESIA TAB [Concomitant]
  18. PREDNISONE [Concomitant]
  19. ASPIRIN [Concomitant]
  20. CLONAZEPAM [Concomitant]
  21. PANTOPRAZOLE [Concomitant]
  22. POLYETHYLENE GLYCOL [Concomitant]
  23. AZATHIOPRINE [Suspect]
     Indication: DERMATOMYOSITIS
     Dosage: 50 MG BID PO
     Route: 048
     Dates: start: 20111101
  24. LIDOCAINE [Concomitant]

REACTIONS (7)
  - VOMITING [None]
  - INTERNATIONAL NORMALISED RATIO INCREASED [None]
  - RENAL FAILURE ACUTE [None]
  - GENERAL PHYSICAL HEALTH DETERIORATION [None]
  - HAEMATOCHEZIA [None]
  - NAUSEA [None]
  - HEPATOTOXICITY [None]
